FAERS Safety Report 18202270 (Version 1)
Quarter: 2020Q3

REPORT INFORMATION
  Report Type: Spontaneous
  Country: CN (occurrence: CN)
  Receive Date: 20200827
  Receipt Date: 20200827
  Transmission Date: 20201103
  Serious: Yes (Other)
  Sender: FDA-Public Use
  Company Number: CN-TAKEDA-2020TUS035956

PATIENT
  Age: 65 Year
  Sex: Female
  Weight: 69 kg

DRUGS (3)
  1. THALIDOMIDE [Suspect]
     Active Substance: THALIDOMIDE
     Indication: PLASMACYTOMA
     Dosage: 100 MILLIGRAM, QD
     Route: 048
     Dates: start: 20200520
  2. NINLARO [Suspect]
     Active Substance: IXAZOMIB CITRATE
     Indication: PLASMACYTOMA
     Dosage: 4 MILLIGRAM
     Route: 048
     Dates: start: 20200520
  3. DALETUXIMAB [Suspect]
     Active Substance: INVESTIGATIONAL PRODUCT
     Indication: CHEMOTHERAPY
     Dosage: 1100 MILLIGRAM
     Route: 065
     Dates: start: 20200520

REACTIONS (4)
  - Cytopenia [Recovering/Resolving]
  - Granulocytopenia [Recovering/Resolving]
  - Leukopenia [Recovering/Resolving]
  - Nausea [Recovering/Resolving]

NARRATIVE: CASE EVENT DATE: 20200523
